FAERS Safety Report 10100318 (Version 1)
Quarter: 2014Q2

REPORT INFORMATION
  Report Type: Spontaneous
  Country: US (occurrence: US)
  Receive Date: 20140423
  Receipt Date: 20140423
  Transmission Date: 20141212
  Serious: No
  Sender: FDA-Public Use
  Company Number: US-ENDO PHARMACEUTICALS INC.-DICY20130003

PATIENT
  Age: 62 Year
  Sex: Female

DRUGS (3)
  1. CLONIDINE HCL TABLETS 0.1MG [Suspect]
     Indication: HYPERTENSION
     Route: 048
     Dates: start: 20130518, end: 201305
  2. ALPRAZOLAM IR TABLETS 0.5MG [Concomitant]
     Indication: GASTRIC ULCER
     Route: 048
     Dates: end: 201305
  3. DICYCLOMINE HYDROCHLORIDE SYRUP 10MG/5ML [Concomitant]
     Indication: GASTRIC ULCER
     Route: 048
     Dates: end: 201305

REACTIONS (1)
  - Gastric ulcer [Recovered/Resolved]
